FAERS Safety Report 9749999 (Version 1)
Quarter: 2013Q4

REPORT INFORMATION
  Report Type: Report from Study
  Country: JP (occurrence: JP)
  Receive Date: 20131212
  Receipt Date: 20131212
  Transmission Date: 20140711
  Serious: Yes (Death, Hospitalization, Other)
  Sender: FDA-Public Use
  Company Number: JP-BAYER-2013-148272

PATIENT
  Age: 68 Year
  Sex: Female
  Weight: 51 kg

DRUGS (4)
  1. STIVARGA [Suspect]
     Indication: COLON CANCER
     Dosage: 160 MG, QD (3 WEEKS ON AND 1 WEEK OFF)
     Route: 048
     Dates: start: 20130814, end: 20130827
  2. STIVARGA [Suspect]
     Indication: COLON CANCER
     Dosage: 120 MG, QD (3 WEEKS ON AND 1 WEEK OFF)
     Route: 048
     Dates: start: 20130905, end: 20131015
  3. MAXIPIME [Suspect]
     Dosage: UNK
     Dates: end: 2013
  4. UREPEARL [Concomitant]
     Indication: DRUG TOXICITY PROPHYLAXIS
     Dosage: UNK
     Route: 061
     Dates: start: 20130814

REACTIONS (12)
  - Pyrexia [Recovered/Resolved]
  - Aspartate aminotransferase increased [Recovered/Resolved]
  - Blood bilirubin increased [Not Recovered/Not Resolved]
  - Hyperkalaemia [Recovered/Resolved]
  - Rash [Recovered/Resolved]
  - Cancer pain [Not Recovered/Not Resolved]
  - Rash [None]
  - Colon cancer [Fatal]
  - Gamma-glutamyltransferase increased [Not Recovered/Not Resolved]
  - White blood cell count decreased [Recovered/Resolved]
  - Platelet count decreased [Recovered/Resolved]
  - Hypoalbuminaemia [Not Recovered/Not Resolved]
